FAERS Safety Report 15947933 (Version 1)
Quarter: 2019Q1

REPORT INFORMATION
  Report Type: Spontaneous
  Country: IL (occurrence: IL)
  Receive Date: 20190212
  Receipt Date: 20190212
  Transmission Date: 20190417
  Serious: Yes (Other)
  Sender: FDA-Public Use
  Company Number: IL-STRIDES ARCOLAB LIMITED-2019SP001296

PATIENT
  Age: 20 Year
  Sex: Male

DRUGS (3)
  1. NAPROXEN. [Suspect]
     Active Substance: NAPROXEN
     Indication: HEADACHE
     Dosage: UNK,REGULAR BASIS
     Route: 048
  2. DIPYRONE [Suspect]
     Active Substance: DIPYRONE
     Indication: HEADACHE
     Dosage: UNK, REGULAR BASIS
     Route: 048
  3. IBUPROFEN. [Suspect]
     Active Substance: IBUPROFEN
     Indication: HEADACHE
     Dosage: UNK, REGULAR BASIS
     Route: 048

REACTIONS (7)
  - Skin swelling [Unknown]
  - Erythema [Unknown]
  - Skin lesion [Unknown]
  - Dermatitis bullous [Unknown]
  - Blister [Unknown]
  - Rash pruritic [Unknown]
  - Fixed eruption [Unknown]
